FAERS Safety Report 11348268 (Version 1)
Quarter: 2015Q3

REPORT INFORMATION
  Report Type: Spontaneous
  Country: US (occurrence: US)
  Receive Date: 20150806
  Receipt Date: 20150806
  Transmission Date: 20151125
  Serious: No
  Sender: FDA-Public Use
  Company Number: US-ABBVIE-14P-163-1297794-00

PATIENT
  Age: 52 Year
  Sex: Female
  Weight: 74.91 kg

DRUGS (5)
  1. DEPAKOTE ER [Suspect]
     Active Substance: DIVALPROEX SODIUM
     Indication: PANIC DISORDER
     Dosage: AT BED TIME
     Route: 065
     Dates: start: 201403, end: 201407
  2. DEPAKOTE ER [Suspect]
     Active Substance: DIVALPROEX SODIUM
     Dosage: AT BED TIME
     Route: 065
     Dates: start: 201407
  3. ZOLOFT [Concomitant]
     Active Substance: SERTRALINE HYDROCHLORIDE
     Indication: ANXIETY
  4. ZOLOFT [Concomitant]
     Active Substance: SERTRALINE HYDROCHLORIDE
     Indication: PANIC DISORDER
  5. DEPAKOTE ER [Suspect]
     Active Substance: DIVALPROEX SODIUM
     Indication: ANXIETY
     Dosage: AT BED TIME
     Route: 065
     Dates: start: 2014, end: 201403

REACTIONS (1)
  - Pruritus [Recovered/Resolved]

NARRATIVE: CASE EVENT DATE: 201402
